FAERS Safety Report 9148311 (Version 1)
Quarter: 2013Q1

REPORT INFORMATION
  Report Type: Spontaneous
  Country: US (occurrence: None)
  Receive Date: 20130228
  Receipt Date: 20130228
  Transmission Date: 20140127
  Serious: Yes (Life-Threatening)
  Sender: FDA-Public Use
  Company Number: None

PATIENT
  Age: 74 Year
  Sex: Male
  Weight: 91.99 kg

DRUGS (1)
  1. XARELTO 20MG JANSSEN [Suspect]
     Indication: ATRIAL FIBRILLATION
     Route: 048
     Dates: start: 20111226, end: 20120104

REACTIONS (18)
  - Mental status changes [None]
  - Acute hepatic failure [None]
  - Coagulopathy [None]
  - Renal failure [None]
  - Hypotension [None]
  - Dizziness [None]
  - Asthenia [None]
  - Decreased appetite [None]
  - Gait disturbance [None]
  - Pericardial effusion [None]
  - International normalised ratio increased [None]
  - Anaemia [None]
  - Distributive shock [None]
  - Blood lactic acid increased [None]
  - Haemolysis [None]
  - Renal failure acute [None]
  - Blood glucose increased [None]
  - Haemorrhage [None]
